FAERS Safety Report 25682068 (Version 1)
Quarter: 2025Q3

REPORT INFORMATION
  Report Type: Spontaneous
  Country: US (occurrence: US)
  Receive Date: 20250814
  Receipt Date: 20250814
  Transmission Date: 20251021
  Serious: Yes (Other)
  Sender: BIOVITRUM
  Company Number: US-BIOVITRUM-2025-US-011154

PATIENT
  Age: 66 Year
  Sex: Male

DRUGS (2)
  1. ANAKINRA [Suspect]
     Active Substance: ANAKINRA
     Indication: Lymphoma
  2. ANAKINRA [Suspect]
     Active Substance: ANAKINRA
     Indication: Schinzel syndrome

REACTIONS (2)
  - Amyloidosis [Unknown]
  - Off label use [Unknown]
